FAERS Safety Report 5714721-1 (Version None)
Quarter: 2008Q2

REPORT INFORMATION
  Report Type: 
  Country: None (occurrence: None)
  Receive Date: 20080423
  Receipt Date: 19910903
  Transmission Date: 20081010
  Serious: Yes (Death)
  Sender: FDA-Public Use
  Company Number: AU-ROCHE-910194002001

PATIENT
  Sex: Male

DRUGS (2)
  1. INTERFERON ALFA-2A [Suspect]
     Route: 058
     Dates: start: 19891201, end: 19910403
  2. CYTARABINE [Suspect]
     Dosage: DAILY FOR 3 WEEKS, ALTERNATING 3 WEEKS ARA-C FREE.
     Route: 058
     Dates: start: 19900828, end: 19910304

REACTIONS (1)
  - INTRACRANIAL TUMOUR HAEMORRHAGE [None]
